FAERS Safety Report 9643675 (Version 5)
Quarter: 2015Q3

REPORT INFORMATION
  Report Type: Spontaneous
  Country: FR (occurrence: FR)
  Receive Date: 20131024
  Receipt Date: 20150805
  Transmission Date: 20151125
  Serious: Yes (Other)
  Sender: FDA-Public Use
  Company Number: PHHY2012FR047403

PATIENT
  Age: 42 Year
  Sex: Female

DRUGS (10)
  1. SULFUR. [Concomitant]
     Active Substance: SULFUR
     Indication: PRODUCT USED FOR UNKNOWN INDICATION
     Dosage: UNK
     Route: 065
  2. NOCTAMIDE [Concomitant]
     Active Substance: LORMETAZEPAM
     Indication: PRODUCT USED FOR UNKNOWN INDICATION
     Dosage: 2 MG, DAILY
     Route: 048
  3. GELSEMIUM [Concomitant]
     Active Substance: GELSEMIUM SEMPERVIRENS ROOT
     Indication: PRODUCT USED FOR UNKNOWN INDICATION
     Dosage: UNK
     Route: 065
  4. TEGRETOL [Suspect]
     Active Substance: CARBAMAZEPINE
     Indication: MAJOR DEPRESSION
     Dosage: 600 MG, QD
     Route: 048
     Dates: start: 2012
  5. PULSATILLA [Concomitant]
     Indication: PRODUCT USED FOR UNKNOWN INDICATION
     Dosage: UNK
     Route: 065
  6. NATRIUM MURIATICUM [Concomitant]
     Indication: PRODUCT USED FOR UNKNOWN INDICATION
     Dosage: UNK
     Route: 065
  7. FERRUM [Concomitant]
     Active Substance: FERROUS FUMARATE
     Indication: PRODUCT USED FOR UNKNOWN INDICATION
     Dosage: UNK
     Route: 065
  8. NUX VOMICA [Concomitant]
     Indication: PRODUCT USED FOR UNKNOWN INDICATION
     Dosage: UNK
     Route: 065
  9. TEGRETOL [Suspect]
     Active Substance: CARBAMAZEPINE
     Indication: AFFECTIVE DISORDER
     Dosage: 400 MG, QD
     Route: 048
     Dates: start: 2008, end: 2011
  10. TEGRETOL [Suspect]
     Active Substance: CARBAMAZEPINE
     Indication: DELUSION

REACTIONS (39)
  - Hypergammaglobulinaemia [Not Recovered/Not Resolved]
  - Dry skin [Not Recovered/Not Resolved]
  - Throat irritation [Not Recovered/Not Resolved]
  - Conjunctivitis [Unknown]
  - Photosensitivity reaction [Unknown]
  - Rash [Unknown]
  - Peripheral swelling [Unknown]
  - Generalised erythema [Unknown]
  - Joint lock [Not Recovered/Not Resolved]
  - Fatigue [Unknown]
  - Gingival swelling [Not Recovered/Not Resolved]
  - Visual acuity reduced [Not Recovered/Not Resolved]
  - Dry mouth [Not Recovered/Not Resolved]
  - Autoimmune disorder [Unknown]
  - Anaemia [Not Recovered/Not Resolved]
  - Hypovitaminosis [Not Recovered/Not Resolved]
  - Helicobacter gastritis [Unknown]
  - Pruritus [Not Recovered/Not Resolved]
  - Pain [Not Recovered/Not Resolved]
  - Myalgia [Not Recovered/Not Resolved]
  - Eye burns [Unknown]
  - Skin disorder [Not Recovered/Not Resolved]
  - Allergy to chemicals [Unknown]
  - Hot flush [Not Recovered/Not Resolved]
  - Drug hypersensitivity [Not Recovered/Not Resolved]
  - Weight decreased [Not Recovered/Not Resolved]
  - Peripheral vascular disorder [Unknown]
  - Dry eye [Not Recovered/Not Resolved]
  - Burning sensation [Not Recovered/Not Resolved]
  - Head discomfort [Not Recovered/Not Resolved]
  - Bone deformity [Not Recovered/Not Resolved]
  - Arthralgia [Unknown]
  - Hypogammaglobulinaemia [Unknown]
  - Lip erosion [Not Recovered/Not Resolved]
  - Glossodynia [Not Recovered/Not Resolved]
  - Iron deficiency [Unknown]
  - Gastrointestinal disorder [Not Recovered/Not Resolved]
  - Alopecia [Not Recovered/Not Resolved]
  - Ocular discomfort [Not Recovered/Not Resolved]

NARRATIVE: CASE EVENT DATE: 20080704
